FAERS Safety Report 8003342-6 (Version None)
Quarter: 2011Q4

REPORT INFORMATION
  Report Type: 
  Country: None (occurrence: None)
  Receive Date: 20111222
  Receipt Date: 20111214
  Transmission Date: 20120403
  Serious: Yes (Other)
  Sender: FDA-Public Use
  Company Number: PHEH2008US07079

PATIENT
  Sex: Female
  Weight: 94.331 kg

DRUGS (18)
  1. AREDIA [Suspect]
     Indication: BONE LOSS
     Dosage: 90 MG, QMO
     Route: 042
     Dates: start: 20020201, end: 20030305
  2. ATORVASTATIN [Concomitant]
  3. METFORMIN HCL [Concomitant]
  4. CELEXA [Concomitant]
  5. FLEXERIL [Concomitant]
  6. SYNTHROID [Concomitant]
  7. AREDIA [Suspect]
     Indication: OSTEOPOROSIS
  8. ZOMETA [Suspect]
     Indication: BREAST CANCER
     Dosage: 4 MG, QMO
     Route: 042
     Dates: start: 20030305, end: 20040201
  9. ALTACE [Concomitant]
  10. WELLBUTRIN [Concomitant]
  11. THYROID TAB [Concomitant]
  12. ZETIA [Concomitant]
  13. NORVASC [Concomitant]
  14. FLOMAX [Concomitant]
  15. AREDIA [Suspect]
     Indication: BREAST CANCER
  16. HYDROCHLOROTHIAZIDE [Concomitant]
  17. DONNATAL [Concomitant]
  18. LEXAPRO [Concomitant]

REACTIONS (53)
  - METABOLIC SYNDROME [None]
  - COLONIC POLYP [None]
  - CHOLELITHIASIS [None]
  - OBESITY [None]
  - DIZZINESS [None]
  - ONYCHOMYCOSIS [None]
  - BASEDOW'S DISEASE [None]
  - LYMPHADENOPATHY [None]
  - PERIODONTAL DISEASE [None]
  - PAIN [None]
  - JAW DISORDER [None]
  - HYPERTENSION [None]
  - INTERVERTEBRAL DISC PROTRUSION [None]
  - SPINAL OSTEOARTHRITIS [None]
  - NEPHROLITHIASIS [None]
  - DYSPNOEA EXERTIONAL [None]
  - CERVICAL SPINAL STENOSIS [None]
  - EXPOSED BONE IN JAW [None]
  - IMPAIRED HEALING [None]
  - HEPATIC LESION [None]
  - CALCULUS URETERIC [None]
  - HYDRONEPHROSIS [None]
  - HYPOKALAEMIA [None]
  - SINUS DISORDER [None]
  - SENSORY LOSS [None]
  - JAW FRACTURE [None]
  - ROAD TRAFFIC ACCIDENT [None]
  - ANAEMIA [None]
  - DIARRHOEA [None]
  - HYDROURETER [None]
  - ASTHENIA [None]
  - EXOSTOSIS [None]
  - ORAL DISORDER [None]
  - PRIMARY SEQUESTRUM [None]
  - OSTEOMYELITIS [None]
  - ORAL CANDIDIASIS [None]
  - OSTEOARTHRITIS [None]
  - SPINAL CORD COMPRESSION [None]
  - VAGINAL INFECTION [None]
  - HYPERLIPIDAEMIA [None]
  - DISABILITY [None]
  - EPICONDYLITIS [None]
  - INTERVERTEBRAL DISC DEGENERATION [None]
  - VERTEBRAL FORAMINAL STENOSIS [None]
  - DENTAL CARIES [None]
  - OSTEONECROSIS OF JAW [None]
  - ANXIETY [None]
  - LEUKOPENIA [None]
  - HEPATIC STEATOSIS [None]
  - DIABETES MELLITUS [None]
  - GASTROENTERITIS VIRAL [None]
  - HYPOGLYCAEMIA [None]
  - HEART RATE INCREASED [None]
